FAERS Safety Report 6125812-8 (Version None)
Quarter: 2009Q1

REPORT INFORMATION
  Report Type: 
  Country: None (occurrence: None)
  Receive Date: 20090318
  Receipt Date: 20090303
  Transmission Date: 20090719
  Serious: Yes (Other)
  Sender: FDA-Public Use
  Company Number: 2009S1003835

PATIENT
  Age: 69 Year
  Sex: Female

DRUGS (9)
  1. GABAPENTIN [Suspect]
     Indication: NEURALGIA
     Dosage: 1.2 G;DAILY;ORAL
     Route: 048
     Dates: start: 20081201, end: 20090112
  2. METFORMIN HCL [Suspect]
     Indication: DIABETES MELLITUS
     Dosage: 1 G;DAILY;ORAL
     Route: 048
     Dates: start: 20090110, end: 20090112
  3. CLEXANE (CON.) [Concomitant]
  4. CLONIDIN (CON.) [Concomitant]
  5. DECORTIN (CON.) [Concomitant]
  6. METRONIDAZOL / 00012501 / (CON.) [Concomitant]
  7. NEXIUM (CON.) [Concomitant]
  8. PARACETAMOL (CON.) [Concomitant]
  9. ZOPICLON (CON.) [Concomitant]

REACTIONS (1)
  - AGRANULOCYTOSIS [None]
